FAERS Safety Report 14420190 (Version 1)
Quarter: 2018Q1

REPORT INFORMATION
  Report Type: Spontaneous
  Country: US (occurrence: US)
  Receive Date: 20180122
  Receipt Date: 20180122
  Transmission Date: 20180509
  Serious: No
  Sender: FDA-Public Use
  Company Number: US-ROCHE-1885586

PATIENT
  Sex: Female

DRUGS (1)
  1. RITUXAN [Suspect]
     Active Substance: RITUXIMAB
     Indication: AUTOIMMUNE DISORDER
     Dosage: YES
     Route: 065

REACTIONS (6)
  - Skin burning sensation [Unknown]
  - Hyperchlorhydria [Unknown]
  - Eating disorder [Unknown]
  - Pain [Unknown]
  - Abdominal discomfort [Unknown]
  - Pruritus [Unknown]
